FAERS Safety Report 9839160 (Version 3)
Quarter: 2014Q1

REPORT INFORMATION
  Report Type: Spontaneous
  Country: US (occurrence: US)
  Receive Date: 20140123
  Receipt Date: 20140212
  Transmission Date: 20141002
  Serious: Yes (Hospitalization)
  Sender: FDA-Public Use
  Company Number: US-B.I. PHARMACEUTICALS,INC./RIDGEFIELD-2014-BI-02421BP

PATIENT
  Age: 82 Year
  Sex: Female
  Weight: 56.82 kg

DRUGS (2)
  1. PRADAXA [Suspect]
     Indication: ATRIAL FIBRILLATION
     Dosage: 300 MG
     Route: 048
     Dates: start: 20121029, end: 20121115
  2. PRADAXA [Suspect]
     Dates: start: 20131126, end: 20131126

REACTIONS (2)
  - Subdural haematoma [Recovered/Resolved]
  - Haemorrhage intracranial [Unknown]
